FAERS Safety Report 5309463-0 (Version None)
Quarter: 2007Q2

REPORT INFORMATION
  Report Type: 
  Country: None (occurrence: None)
  Receive Date: 20070427
  Receipt Date: 20070418
  Transmission Date: 20071010
  Serious: Yes (Other)
  Sender: FDA-Public Use
  Company Number: PHBS2007BE04592

PATIENT
  Sex: Female

DRUGS (1)
  1. CLOZAPINE [Suspect]
     Dosage: UNK, QD
     Route: 048

REACTIONS (3)
  - CONDITION AGGRAVATED [None]
  - FALL [None]
  - PAIN IN EXTREMITY [None]
